FAERS Safety Report 5819715-3 (Version None)
Quarter: 2008Q3

REPORT INFORMATION
  Report Type: 
  Country: None (occurrence: None)
  Receive Date: 20080717
  Receipt Date: 20080701
  Transmission Date: 20090109
  Serious: Yes (Hospitalization)
  Sender: FDA-Public Use
  Company Number: 8034073

PATIENT
  Age: 46 Year
  Sex: Male
  Weight: 75 kg

DRUGS (2)
  1. TUSSIONEX [Suspect]
     Indication: COUGH
     Dosage: 5 ML 2/D PO
     Route: 048
     Dates: start: 20070401
  2. ATIVAN [Concomitant]

REACTIONS (2)
  - CHEST PAIN [None]
  - DYSPNOEA [None]
